FAERS Safety Report 18695186 (Version 1)
Quarter: 2021Q1

REPORT INFORMATION
  Report Type: Spontaneous
  Country: IT (occurrence: IT)
  Receive Date: 20210104
  Receipt Date: 20210104
  Transmission Date: 20210419
  Serious: Yes (Hospitalization, Other)
  Sender: FDA-Public Use
  Company Number: IT-PFIZER INC-2020517077

PATIENT
  Age: 58 Year
  Sex: Male
  Weight: 83 kg

DRUGS (6)
  1. ONDANSETRON HYDROCHLORIDE. [Concomitant]
     Active Substance: ONDANSETRON HYDROCHLORIDE
  2. SOLDESAM [Concomitant]
     Active Substance: DEXAMETHASONE
  3. CARDIOASPIRIN [Concomitant]
     Active Substance: ASPIRIN
  4. GEMCITABINE HYDROCHLORIDE. [Suspect]
     Active Substance: GEMCITABINE HYDROCHLORIDE
     Indication: BILIARY NEOPLASM
     Dosage: 1000 MG/M2, CYCLIC
     Route: 042
     Dates: start: 20200717
  5. CISPLATIN. [Suspect]
     Active Substance: CISPLATIN
     Indication: BILIARY NEOPLASM
     Dosage: 25 MG/M2, CYCLIC
     Route: 042
     Dates: start: 20200717
  6. PANTOPRAZOLE [Concomitant]
     Active Substance: PANTOPRAZOLE

REACTIONS (5)
  - Thrombosis [Recovered/Resolved]
  - Thrombocytopenia [Recovered/Resolved]
  - Anaemia [Recovered/Resolved]
  - Haematemesis [Recovered/Resolved]
  - Oesophageal haemorrhage [Recovered/Resolved]

NARRATIVE: CASE EVENT DATE: 20201026
